FAERS Safety Report 5406810-6 (Version None)
Quarter: 2007Q3

REPORT INFORMATION
  Report Type: 
  Country: None (occurrence: None)
  Receive Date: 20070807
  Receipt Date: 20070802
  Transmission Date: 20080115
  Serious: Yes (Hospitalization)
  Sender: FDA-Public Use
  Company Number: FRWYE122902AUG07

PATIENT
  Sex: Male

DRUGS (1)
  1. RHINADVIL [Suspect]
     Indication: PHARYNGITIS
     Dosage: UNKNOWN
     Route: 048
     Dates: start: 20070430, end: 20070501

REACTIONS (2)
  - MUCOCUTANEOUS RASH [None]
  - RASH PAPULOSQUAMOUS [None]
